FAERS Safety Report 16736835 (Version 2)
Quarter: 2019Q4

REPORT INFORMATION
  Report Type: Spontaneous
  Country: FR (occurrence: FR)
  Receive Date: 20190823
  Receipt Date: 20191211
  Transmission Date: 20200122
  Serious: Yes (Hospitalization, Other)
  Sender: FDA-Public Use
  Company Number: FR-AMERICAN REGENT INC-20160713

PATIENT
  Age: 4 Year
  Sex: Female

DRUGS (2)
  1. VENOFER [Suspect]
     Active Substance: IRON SUCROSE
     Dosage: UNK
     Route: 042
     Dates: start: 20160718
  2. VENOFER [Suspect]
     Active Substance: IRON SUCROSE
     Indication: ANAEMIA
     Dosage: UNKNOWN 5 WEEKS 1 DAYS
     Route: 042
     Dates: start: 20160613

REACTIONS (10)
  - Blood pressure decreased [Unknown]
  - Varices oesophageal [Unknown]
  - Abdominal pain [Unknown]
  - Portal vein cavernous transformation [Unknown]
  - Arrhythmia [Recovered/Resolved]
  - Transfusion [Unknown]
  - Dyskinesia [Recovered/Resolved]
  - Cyanosis [Recovered/Resolved]
  - Incorrect product administration duration [Unknown]
  - Portal hypertension [Unknown]

NARRATIVE: CASE EVENT DATE: 20160614
